FAERS Safety Report 19990873 (Version 3)
Quarter: 2022Q4

REPORT INFORMATION
  Report Type: Report from Study
  Country: JP (occurrence: JP)
  Receive Date: 20211025
  Receipt Date: 20221007
  Transmission Date: 20230112
  Serious: Yes (Death, Other)
  Sender: FDA-Public Use
  Company Number: JP-NOVARTISPH-NVSJ2021JP017403

PATIENT
  Age: 66 Year
  Sex: Male
  Weight: 69 kg

DRUGS (3)
  1. KYMRIAH [Suspect]
     Active Substance: TISAGENLECLEUCEL
     Indication: Diffuse large B-cell lymphoma
     Dosage: UNK, FULL DOSE
     Route: 041
     Dates: start: 20210903, end: 20210903
  2. CYCLOPHOSPHAMIDE [Concomitant]
     Active Substance: CYCLOPHOSPHAMIDE
     Indication: Lymphodepletion
     Dosage: 750 MG/M2
     Route: 065
     Dates: start: 20210830
  3. FLUDARABINE PHOSPHATE [Concomitant]
     Active Substance: FLUDARABINE PHOSPHATE
     Indication: Lymphodepletion
     Dosage: 75 MG/M2
     Route: 065
     Dates: start: 20210830

REACTIONS (10)
  - Infection [Fatal]
  - Pneumonia pseudomonal [Fatal]
  - Sepsis [Fatal]
  - Respiratory failure [Fatal]
  - Myelosuppression [Unknown]
  - Cytokine release syndrome [Not Recovered/Not Resolved]
  - Pyrexia [Unknown]
  - Hypogammaglobulinaemia [Recovered/Resolved]
  - Haemophagocytic lymphohistiocytosis [Unknown]
  - Haemoglobin decreased [Unknown]

NARRATIVE: CASE EVENT DATE: 20210904
